FAERS Safety Report 12378361 (Version 1)
Quarter: 2016Q2

REPORT INFORMATION
  Report Type: Spontaneous
  Country: BR (occurrence: BR)
  Receive Date: 20160517
  Receipt Date: 20160517
  Transmission Date: 20160815
  Serious: Yes (Other)
  Sender: FDA-Public Use
  Company Number: BR-JNJFOC-20150408333

PATIENT
  Age: 53 Year
  Sex: Female
  Weight: 167 kg

DRUGS (6)
  1. SIMPONI [Suspect]
     Active Substance: GOLIMUMAB
     Indication: RHEUMATIC DISORDER
     Route: 058
     Dates: end: 20160103
  2. METHOTREXATE [Concomitant]
     Active Substance: METHOTREXATE
     Route: 065
  3. LOSARTAN. [Concomitant]
     Active Substance: LOSARTAN
     Route: 065
  4. SIMPONI [Suspect]
     Active Substance: GOLIMUMAB
     Indication: RHEUMATOID ARTHRITIS
     Route: 058
     Dates: end: 20160103
  5. SIMPONI [Suspect]
     Active Substance: GOLIMUMAB
     Indication: RHEUMATIC DISORDER
     Route: 058
     Dates: start: 20150406
  6. SIMPONI [Suspect]
     Active Substance: GOLIMUMAB
     Indication: RHEUMATOID ARTHRITIS
     Route: 058
     Dates: start: 20150406

REACTIONS (7)
  - Blister [Not Recovered/Not Resolved]
  - Headache [Not Recovered/Not Resolved]
  - Skin fissures [Not Recovered/Not Resolved]
  - Dry skin [Unknown]
  - Weight fluctuation [Unknown]
  - Skin fissures [Unknown]
  - Drug ineffective [Not Recovered/Not Resolved]

NARRATIVE: CASE EVENT DATE: 20150406
